FAERS Safety Report 9964461 (Version 1)
Quarter: 2014Q1

REPORT INFORMATION
  Report Type: Other
  Country: FR (occurrence: SN)
  Receive Date: 20140305
  Receipt Date: 20140305
  Transmission Date: 20141002
  Serious: Yes (Death)
  Sender: FDA-Public Use
  Company Number: FR-BRISTOL-MYERS SQUIBB COMPANY-20339826

PATIENT
  Sex: 0

DRUGS (6)
  1. EFAVIRENZ [Suspect]
     Indication: HIV INFECTION
     Route: 064
  2. TENOFOVIR [Suspect]
     Indication: HIV INFECTION
     Route: 064
  3. EMTRICITABINE [Suspect]
     Indication: HIV INFECTION
     Route: 064
  4. NEVIRAPINE [Suspect]
  5. RIFAMPIN [Concomitant]
  6. SULFAMETHOXAZOLE + TRIMETHOPRIM [Concomitant]

REACTIONS (2)
  - Foetal death [Fatal]
  - Foetal exposure during pregnancy [Unknown]
